FAERS Safety Report 19414123 (Version 1)
Quarter: 2021Q2

REPORT INFORMATION
  Report Type: Report from Study
  Country: KR (occurrence: KR)
  Receive Date: 20210615
  Receipt Date: 20210615
  Transmission Date: 20210717
  Serious: Yes (Hospitalization)
  Sender: FDA-Public Use
  Company Number: KR-JNJFOC-20210628186

PATIENT
  Sex: Female
  Weight: 45 kg

DRUGS (23)
  1. MEIACT [Concomitant]
     Active Substance: CEFDITOREN PIVOXIL
     Indication: HAEMATURIA
     Dosage: 300 MG, UNK
     Route: 048
     Dates: start: 20200406, end: 20200425
  2. XARELTO [Suspect]
     Active Substance: RIVAROXABAN
     Indication: EMBOLISM
     Dosage: 15 MG, QD
     Route: 048
     Dates: start: 20200401
  3. VAXONE S [Concomitant]
     Dosage: UNK
     Route: 048
     Dates: start: 20200420, end: 20200420
  4. MOTILITONE [Concomitant]
     Active Substance: HERBALS
     Indication: DYSPEPSIA
     Dosage: UNK
     Route: 048
     Dates: start: 20201008
  5. BESAMEL [Concomitant]
     Indication: DYSPEPSIA
     Dosage: UNK
     Route: 048
     Dates: start: 20201008, end: 20201107
  6. STOGAR [Concomitant]
     Active Substance: LAFUTIDINE
     Dosage: UNK
     Route: 048
     Dates: start: 20201008, end: 20201107
  7. RYTMONORM [Concomitant]
     Active Substance: PROPAFENONE
     Dosage: 325 MG, UNK
     Route: 048
     Dates: start: 20200106, end: 20200220
  8. TORASEMIDE [Concomitant]
     Active Substance: TORSEMIDE
     Indication: DYSPNOEA
     Dosage: 5 MG, UNK
     Route: 048
     Dates: start: 20200221, end: 20200401
  9. XARELTO [Suspect]
     Active Substance: RIVAROXABAN
     Indication: CEREBROVASCULAR ACCIDENT PROPHYLAXIS
     Dosage: 15 MG, QD
     Route: 048
     Dates: start: 20200106, end: 20200329
  10. OLOSTAR [Concomitant]
     Dosage: UNK
     Route: 048
     Dates: start: 20200106
  11. DIGOSIN [Concomitant]
     Active Substance: DIGOXIN
     Indication: DIZZINESS
     Dosage: 0.25 MG
     Route: 048
     Dates: start: 20200309, end: 20200317
  12. CORDARONE [Concomitant]
     Active Substance: AMIODARONE HYDROCHLORIDE
     Indication: PALPITATIONS
     Dosage: 150 MG, UNK
     Route: 042
     Dates: start: 20200221, end: 20200221
  13. CORDARONE [Concomitant]
     Active Substance: AMIODARONE HYDROCHLORIDE
     Indication: PALPITATIONS
     Dosage: 150 MG, UNK
     Route: 042
     Dates: start: 20200221, end: 20200221
  14. LASIX [Concomitant]
     Active Substance: FUROSEMIDE
     Indication: DYSPNOEA
     Dosage: UNK
     Route: 042
     Dates: start: 20200221, end: 20200221
  15. JELMIRON [Concomitant]
     Dosage: 300 MG, UNK
     Dates: start: 20200708
  16. TRESTAN [CYANOCOBALAMIN] [Concomitant]
     Indication: ASTHENIA
     Dosage: UNK
     Route: 048
     Dates: start: 20200317, end: 20200323
  17. MONUROL [Concomitant]
     Active Substance: FOSFOMYCIN TROMETHAMINE
     Dosage: UNK
     Route: 048
     Dates: start: 20200708, end: 20210113
  18. VASTINAN [Concomitant]
     Active Substance: TRIMETAZIDINE DIHYDROCHLORIDE
     Dosage: 35 MG, UNK
     Route: 048
     Dates: start: 20130108
  19. CORDARONE [Concomitant]
     Active Substance: AMIODARONE HYDROCHLORIDE
     Indication: PALPITATIONS
     Dosage: 200 MG, UNK
     Dates: start: 20191128, end: 20200305
  20. HERBEN [Concomitant]
     Active Substance: DILTIAZEM HYDROCHLORIDE
     Indication: DYSPNOEA
     Dosage: 90 MG, UNK
     Route: 048
     Dates: start: 20200330
  21. LANSTON LFDT [Concomitant]
     Active Substance: LANSOPRAZOLE
     Indication: HAEMORRHOIDS
     Dosage: 15 MG, UNK
     Route: 048
     Dates: start: 20200401, end: 20200410
  22. NORFERRO [Concomitant]
     Indication: HAEMATURIA
     Dosage: 100 MG, UNK
     Dates: start: 20200406, end: 20201007
  23. NEXIUM [Concomitant]
     Active Substance: ESOMEPRAZOLE MAGNESIUM
     Indication: ASTHENIA
     Dosage: 20 MG, UNK
     Route: 048
     Dates: start: 20200317, end: 20200323

REACTIONS (1)
  - Haemorrhoids [Recovered/Resolved]

NARRATIVE: CASE EVENT DATE: 20200330
